FAERS Safety Report 8926643 (Version 2)
Quarter: 2013Q2

REPORT INFORMATION
  Report Type: Spontaneous
  Country: GB (occurrence: GB)
  Receive Date: 20121127
  Receipt Date: 20130517
  Transmission Date: 20140414
  Serious: Yes (Hospitalization, Other)
  Sender: FDA-Public Use
  Company Number: PHHY2012GB106526

PATIENT
  Age: 5 Month
  Sex: Female

DRUGS (2)
  1. CETIRIZINE [Suspect]
     Dates: start: 20120417, end: 20120422
  2. RANITIDINE [Suspect]
     Dosage: 1 ML, TID (1 ML OF 75MG/5ML SUSPENSION TAKEN 3X DAILY)
     Route: 048

REACTIONS (5)
  - Gastric ulcer [Recovered/Resolved with Sequelae]
  - Decreased appetite [Recovering/Resolving]
  - Crying [Recovered/Resolved]
  - Screaming [Recovered/Resolved]
  - Drug dispensing error [Recovered/Resolved]
